FAERS Safety Report 4431970-3 (Version None)
Quarter: 2004Q3

REPORT INFORMATION
  Report Type: 
  Country: None (occurrence: None)
  Receive Date: 20040819
  Receipt Date: 20040806
  Transmission Date: 20050211
  Serious: Yes (Hospitalization)
  Sender: FDA-Public Use
  Company Number: 2004227249NL

PATIENT
  Age: 12 Year
  Sex: Female

DRUGS (1)
  1. TRELSTAR DEPOT [Suspect]
     Indication: PRECOCIOUS PUBERTY
     Dosage: 3.75MG/MONTH, INTRAMUSCULAR
     Route: 030
     Dates: start: 19910301, end: 19940401

REACTIONS (2)
  - EPIPHYSIOLYSIS [None]
  - SLIPPED FEMORAL EPIPHYSIS [None]
